FAERS Safety Report 22593635 (Version 1)
Quarter: 2023Q2

REPORT INFORMATION
  Report Type: Spontaneous
  Country: JP (occurrence: JP)
  Receive Date: 20230613
  Receipt Date: 20230613
  Transmission Date: 20230722
  Serious: Yes (Other)
  Sender: FDA-Public Use
  Company Number: JP-CORZA MEDICAL GMBH-2023-JP-002214

PATIENT

DRUGS (5)
  1. TACHOSIL [Suspect]
     Active Substance: FIBRINOGEN HUMAN\THROMBIN HUMAN
     Indication: Haemostasis
     Dosage: TACHOSIL TISSUE SEALING SHEET TAPE (INCLUDING POULTICE), 2 SHEETS
     Route: 033
     Dates: start: 20221122, end: 20221122
  2. TACHOSIL [Suspect]
     Active Substance: FIBRINOGEN HUMAN\THROMBIN HUMAN
     Dosage: TACHOSIL TISSUE SEALING SHEET TAPE (INCLUDING POULTICE), 2 SHEETS
     Route: 033
     Dates: start: 20221122, end: 20221122
  3. BERIPLAST P COMBI [Suspect]
     Active Substance: APROTININ\CALCIUM CHLORIDE\FIBRINOGEN HUMAN\FACTOR XIII CONCENTRATE (HUMAN)\THROMBIN
     Indication: Haemostasis
     Dosage: UNK
     Route: 033
     Dates: start: 20221122, end: 20221122
  4. SURGICEL [Concomitant]
     Active Substance: CELLULOSE, OXIDIZED\DEVICE
     Indication: Haemostasis
     Dosage: UNK
     Route: 065
     Dates: start: 20221122, end: 20221122
  5. ARISTA AH [Concomitant]
     Indication: Haemostasis
     Dosage: UNK
     Route: 065
     Dates: start: 20221122, end: 20221122

REACTIONS (1)
  - Pelvic neoplasm [Unknown]
